FAERS Safety Report 7023132-0 (Version None)
Quarter: 2010Q3

REPORT INFORMATION
  Report Type: 
  Country: None (occurrence: None)
  Receive Date: 20100930
  Receipt Date: 20100927
  Transmission Date: 20110219
  Serious: Yes (Death, Hospitalization)
  Sender: FDA-Public Use
  Company Number: PHHO2010US14645

PATIENT
  Sex: Male

DRUGS (8)
  1. SIMULECT [Suspect]
     Indication: LIVER TRANSPLANT
     Dosage: DAY 0
     Route: 042
     Dates: start: 20080715, end: 20080715
  2. SIMULECT [Suspect]
     Dosage: DAY 4
     Route: 042
     Dates: start: 20080719, end: 20080719
  3. BELATACEPT [Suspect]
     Indication: LIVER TRANSPLANT
     Dosage: UNK
     Route: 042
     Dates: start: 20080715, end: 20081007
  4. CELLCEPT [Suspect]
     Indication: LIVER TRANSPLANT
     Dosage: 2000 MG / DAY
     Route: 048
     Dates: start: 20080715
  5. CELLCEPT [Suspect]
     Dosage: 3 G / DAY
     Route: 048
  6. PROGRAF [Suspect]
     Indication: LIVER TRANSPLANT
     Dosage: UNK
     Route: 048
     Dates: start: 20081028
  7. PREDNISONE [Concomitant]
     Dosage: UNK
     Dates: start: 20080720, end: 20081115
  8. VALCYTE [Concomitant]
     Dosage: UNK
     Dates: start: 20080618

REACTIONS (17)
  - ABDOMINAL DISCOMFORT [None]
  - ANURIA [None]
  - CHOLESTASIS [None]
  - CIRCULATORY COLLAPSE [None]
  - COMPLICATIONS OF TRANSPLANTED LIVER [None]
  - HAEMODYNAMIC INSTABILITY [None]
  - HYPERBILIRUBINAEMIA [None]
  - HYPOTENSION [None]
  - LACTOBACILLUS INFECTION [None]
  - LIVER TRANSPLANT REJECTION [None]
  - NAUSEA [None]
  - RENAL FAILURE [None]
  - SEPSIS [None]
  - SEPTIC SHOCK [None]
  - STAPHYLOCOCCAL INFECTION [None]
  - TRANSPLANT FAILURE [None]
  - VOMITING [None]
